FAERS Safety Report 5868057-9 (Version None)
Quarter: 2008Q3

REPORT INFORMATION
  Report Type: 
  Country: None (occurrence: None)
  Receive Date: 20080902
  Receipt Date: 20080821
  Transmission Date: 20090109
  Serious: Yes (Other)
  Sender: FDA-Public Use
  Company Number: IL-PFIZER INC-2008061560

PATIENT
  Age: 45 Year
  Sex: Female

DRUGS (4)
  1. GEODON [Suspect]
     Indication: BIPOLAR DISORDER
     Dosage: DAILY DOSE:80MG
  2. GEODON [Suspect]
     Indication: SCHIZOAFFECTIVE DISORDER
  3. LITHIUM CARBONATE [Concomitant]
  4. LAMOTRIGINE [Concomitant]

REACTIONS (5)
  - ALOPECIA [None]
  - AMENORRHOEA [None]
  - BLOOD PROLACTIN INCREASED [None]
  - PURULENCE [None]
  - SKIN LESION [None]
